FAERS Safety Report 6333335-6 (Version None)
Quarter: 2009Q3

REPORT INFORMATION
  Report Type: 
  Country: None (occurrence: None)
  Receive Date: 20090828
  Receipt Date: 20081111
  Transmission Date: 20100115
  Serious: No
  Sender: FDA-Public Use
  Company Number: A0744444A

PATIENT
  Age: 36 Year
  Sex: Female

DRUGS (1)
  1. BECONASE [Suspect]
     Route: 045

REACTIONS (1)
  - DRUG INEFFECTIVE [None]
